FAERS Safety Report 8353963-6 (Version None)
Quarter: 2012Q2

REPORT INFORMATION
  Report Type: 
  Country: None (occurrence: None)
  Receive Date: 20120511
  Receipt Date: 20120507
  Transmission Date: 20120825
  Serious: Yes (Other)
  Sender: FDA-Public Use
  Company Number: US-FRI-1000030346

PATIENT
  Sex: Male

DRUGS (1)
  1. BYSTOLIC [Suspect]
     Dosage: 10 MG

REACTIONS (1)
  - HEPATIC ENZYME INCREASED [None]
